FAERS Safety Report 6662132-7 (Version None)
Quarter: 2010Q1

REPORT INFORMATION
  Report Type: 
  Country: None (occurrence: None)
  Receive Date: 20100329
  Receipt Date: 20100317
  Transmission Date: 20100710
  Serious: Yes (Hospitalization)
  Sender: FDA-Public Use
  Company Number: 2009AC000190

PATIENT
  Age: 64 Year
  Sex: Male
  Weight: 91.173 kg

DRUGS (44)
  1. DIGOXIN [Suspect]
     Dosage: 0.25 MG; QD; PO
     Route: 048
     Dates: start: 20060101, end: 20080101
  2. DIGOXIN [Suspect]
     Dosage: 250 MCG; QD; PO
     Route: 048
     Dates: start: 20060830, end: 20070401
  3. DIGOXIN [Suspect]
     Dosage: 0.25 MG; QD; PO
     Route: 048
     Dates: start: 20070423, end: 20070426
  4. DIGOXIN [Suspect]
     Dosage: 0.125 MG; QD; PO
     Route: 048
     Dates: start: 20070427, end: 20070507
  5. ASPIRIN [Concomitant]
  6. PLAVIX [Concomitant]
  7. ALTACE [Concomitant]
  8. COLCHICINE [Concomitant]
  9. COREG [Concomitant]
  10. FOLIC ACID [Concomitant]
  11. POTASSIUM [Concomitant]
  12. SPIRIVA [Concomitant]
  13. ZOCOR [Concomitant]
  14. VITAMIN COMPLEX [Concomitant]
  15. NIFEDIPINE [Concomitant]
  16. FOLATE [Concomitant]
  17. PREDNISONE [Concomitant]
  18. NORVASC [Concomitant]
  19. COZAAR [Concomitant]
  20. CARDIZEM [Concomitant]
  21. LASIX [Concomitant]
  22. CRESTOR [Concomitant]
  23. K-DUR [Concomitant]
  24. TOPROL-XL [Concomitant]
  25. DARVOCET [Concomitant]
  26. AMIODARONE HCL [Concomitant]
  27. PROTONIX [Concomitant]
  28. ALBUTEROL [Concomitant]
  29. METOPROLOL TARTRATE [Concomitant]
  30. SUCCINATE [Concomitant]
  31. AEROSOL [Concomitant]
  32. RAMIPRIL [Concomitant]
  33. CLOPIDOGREL [Concomitant]
  34. TIOTROPIUM BROMIDE [Concomitant]
  35. MONOHYDRATE [Concomitant]
  36. ZOLPIDEM [Concomitant]
  37. SIIMVASTATIN [Concomitant]
  38. BISULFATE [Concomitant]
  39. IBUPROFEN [Concomitant]
  40. THIAMINE [Concomitant]
  41. BENICAR [Concomitant]
  42. VITAMIN E [Concomitant]
  43. WARFARIN [Concomitant]
  44. DULCOLAX [Concomitant]

REACTIONS (33)
  - ALCOHOL USE [None]
  - AORTIC ARTERIOSCLEROSIS [None]
  - ARTERIAL OCCLUSIVE DISEASE [None]
  - ATRIAL FIBRILLATION [None]
  - ATRIAL FLUTTER [None]
  - ATRIOVENTRICULAR BLOCK FIRST DEGREE [None]
  - BRADYCARDIA [None]
  - BUNDLE BRANCH BLOCK LEFT [None]
  - CARDIAC FAILURE CONGESTIVE [None]
  - CARDIOMEGALY [None]
  - CHRONIC OBSTRUCTIVE PULMONARY DISEASE [None]
  - CONDITION AGGRAVATED [None]
  - CORONARY ARTERY DISEASE [None]
  - DIZZINESS [None]
  - ECONOMIC PROBLEM [None]
  - FEMORAL ARTERIAL STENOSIS [None]
  - GOUT [None]
  - HYPERCHOLESTEROLAEMIA [None]
  - HYPERKALAEMIA [None]
  - HYPERLIPIDAEMIA [None]
  - HYPERTENSION [None]
  - ILIAC ARTERY STENOSIS [None]
  - INTERMITTENT CLAUDICATION [None]
  - ISCHAEMIC CARDIOMYOPATHY [None]
  - MITRAL VALVE INCOMPETENCE [None]
  - MULTIPLE INJURIES [None]
  - MYOCARDIAL CALCIFICATION [None]
  - PERIPHERAL VASCULAR DISORDER [None]
  - RENAL FAILURE [None]
  - RESPIRATORY DISTRESS [None]
  - TACHYCARDIA [None]
  - TOBACCO USER [None]
  - VENTRICULAR HYPOKINESIA [None]
